FAERS Safety Report 4395633-5 (Version None)
Quarter: 2004Q3

REPORT INFORMATION
  Report Type: 
  Country: None (occurrence: None)
  Receive Date: 20040708
  Receipt Date: 20040625
  Transmission Date: 20050211
  Serious: Yes (Death)
  Sender: FDA-Public Use
  Company Number: US-JNJFOC-20040607917

PATIENT
  Age: 78 Year
  Sex: Female
  Weight: 52.6173 kg

DRUGS (17)
  1. INFLIXIMAB (INFLIXIMAB, RECOMBINANT) LYOPHILIZED POWDER [Suspect]
     Indication: RHEUMATOID ARTHRITIS
     Dosage: INTRAVENOUS
     Route: 042
     Dates: start: 20030422
  2. METHYLPREDNISOLONE [Concomitant]
  3. NIFEDICAL XL (NIFEDIPINE) [Concomitant]
  4. NEURONTIN [Concomitant]
  5. MIACALCIN [Concomitant]
  6. ESTRATEST [Concomitant]
  7. NEXIUM [Concomitant]
  8. HYDROCODONE BITARTRATE [Concomitant]
  9. BUTALBITAL/ACETAMINOPHEN/CAFFEINE) (AXOTAL (OLD FORM) [Concomitant]
  10. TRAZADONE (TRAZODONE) [Concomitant]
  11. AMITRIPTYLINE HCL [Concomitant]
  12. LOLRAZEPAM (LORAZEPAM) [Concomitant]
  13. CARISOPRODOL [Concomitant]
  14. ASPIRIN [Concomitant]
  15. CALCIUM (CALCIUM) [Concomitant]
  16. DITROPAN XL [Concomitant]
  17. DOCUSATE (DOCUSATE) [Concomitant]

REACTIONS (1)
  - SEPSIS SYNDROME [None]
